FAERS Safety Report 9442327 (Version 1)
Quarter: 2013Q3

REPORT INFORMATION
  Report Type: Spontaneous
  Country: US (occurrence: US)
  Receive Date: 20130806
  Receipt Date: 20130806
  Transmission Date: 20140515
  Serious: No
  Sender: FDA-Public Use
  Company Number: US-GLAXOSMITHKLINE-A1004906A

PATIENT
  Age: 12 Year
  Sex: Female

DRUGS (3)
  1. ADVAIR [Suspect]
     Indication: ASTHMA
     Dosage: 2SPR TWICE PER DAY
     Route: 055
     Dates: start: 2010
  2. CETIRIZINE [Concomitant]
  3. MONTELUKAST SODIUM [Concomitant]

REACTIONS (6)
  - Asthma [Recovered/Resolved]
  - Crepitations [Unknown]
  - Wheezing [Unknown]
  - Respiratory tract congestion [Unknown]
  - Pyrexia [Unknown]
  - Atelectasis [Unknown]
